FAERS Safety Report 12461001 (Version 3)
Quarter: 2016Q4

REPORT INFORMATION
  Report Type: Report from Study
  Country: US (occurrence: US)
  Receive Date: 20160613
  Receipt Date: 20161129
  Transmission Date: 20170207
  Serious: Yes (Hospitalization)
  Sender: FDA-Public Use
  Company Number: US-VERTEX PHARMACEUTICALS-2016-003638

PATIENT
  Sex: Male

DRUGS (1)
  1. ORKAMBI [Suspect]
     Active Substance: IVACAFTOR\LUMACAFTOR
     Indication: CYSTIC FIBROSIS
     Dosage: UNK, BID
     Route: 048
     Dates: start: 20150921, end: 20161019

REACTIONS (6)
  - Dermatitis acneiform [Recovering/Resolving]
  - Haematuria [Unknown]
  - Pyrexia [Unknown]
  - General physical health deterioration [Unknown]
  - Rash erythematous [Unknown]
  - Calculus urinary [Unknown]
